FAERS Safety Report 16783049 (Version 3)
Quarter: 2019Q3

REPORT INFORMATION
  Report Type: Spontaneous
  Country: JP (occurrence: JP)
  Receive Date: 20190906
  Receipt Date: 20190929
  Transmission Date: 20191005
  Serious: Yes (Hospitalization)
  Sender: FDA-Public Use
  Company Number: PHJP2019JP011467

PATIENT
  Age: 71 Year
  Sex: Male

DRUGS (3)
  1. TIGASON [Concomitant]
     Indication: PUSTULAR PSORIASIS
     Dosage: 10 MG, UNK
     Route: 048
     Dates: start: 20160106, end: 20171122
  2. NEORAL [Concomitant]
     Active Substance: CYCLOSPORINE
     Indication: PUSTULAR PSORIASIS
     Dosage: UNK
     Route: 048
  3. COSENTYX [Suspect]
     Active Substance: SECUKINUMAB
     Indication: PUSTULAR PSORIASIS
     Dosage: 300 MG, 4W
     Route: 058
     Dates: start: 20160106, end: 20160622

REACTIONS (4)
  - Rash [Recovered/Resolved]
  - Pustular psoriasis [Recovering/Resolving]
  - Disease progression [Recovering/Resolving]
  - Lung squamous cell carcinoma stage III [Recovered/Resolved]

NARRATIVE: CASE EVENT DATE: 20160525
